FAERS Safety Report 24443761 (Version 1)
Quarter: 2024Q4

REPORT INFORMATION
  Report Type: Spontaneous
  Country: GB (occurrence: GB)
  Receive Date: 20241016
  Receipt Date: 20241016
  Transmission Date: 20250115
  Serious: Yes (Other)
  Sender: MYLAN
  Company Number: None

PATIENT

DRUGS (1)
  1. LANSOPRAZOLE [Suspect]
     Active Substance: LANSOPRAZOLE
     Indication: Product used for unknown indication
     Dosage: 15 MILLIGRAM
     Route: 065

REACTIONS (11)
  - Arthralgia [Unknown]
  - Myalgia [Unknown]
  - Oedema [Unknown]
  - Diarrhoea [Unknown]
  - Hyperhidrosis [Unknown]
  - Dyspepsia [Unknown]
  - Insomnia [Unknown]
  - Flatulence [Unknown]
  - Lethargy [Unknown]
  - Alopecia [Unknown]
  - Paraesthesia [Unknown]
